FAERS Safety Report 8622885-5 (Version None)
Quarter: 2012Q3

REPORT INFORMATION
  Report Type: 
  Country: None (occurrence: None)
  Receive Date: 20120813
  Receipt Date: 20120803
  Transmission Date: 20120928
  Serious: Yes (Other)
  Sender: FDA-Public Use
  Company Number: 2012SA056380

PATIENT
  Age: 61 Year
  Sex: Male

DRUGS (1)
  1. CAPZASIN [Suspect]
     Indication: ARTHRALGIA
     Dates: start: 20120803, end: 20120803

REACTIONS (2)
  - APPLICATION SITE ERYTHEMA [None]
  - APPLICATION SITE VESICLES [None]
